FAERS Safety Report 25353617 (Version 1)
Quarter: 2025Q2

REPORT INFORMATION
  Report Type: Report from Study
  Country: US (occurrence: US)
  Receive Date: 20250523
  Receipt Date: 20250523
  Transmission Date: 20250716
  Serious: Yes (Death)
  Sender: BAYER HEALTHCARE PHARMACEUTICALS INC.
  Company Number: US-BAYER-2025A069429

PATIENT
  Age: 80 Year
  Sex: Female
  Weight: 59.864 kg

DRUGS (39)
  1. ADEMPAS [Suspect]
     Active Substance: RIOCIGUAT
     Indication: Pulmonary arterial hypertension
     Dates: start: 20230607
  2. ADEMPAS [Suspect]
     Active Substance: RIOCIGUAT
     Indication: Pulmonary arterial hypertension
     Dosage: 2.5 MG, TID
     Route: 048
  3. ANORO ELLIPTA [Concomitant]
     Active Substance: UMECLIDINIUM BROMIDE\VILANTEROL TRIFENATATE
  4. CLINDAMYCIN HYDROCHLORIDE [Concomitant]
     Active Substance: CLINDAMYCIN HYDROCHLORIDE
  5. VALACYCLOVIR [Concomitant]
     Active Substance: VALACYCLOVIR HYDROCHLORIDE
  6. IBANDRONATE SODIUM [Concomitant]
     Active Substance: IBANDRONATE SODIUM
  7. ALBUTEROL SULFATE [Concomitant]
     Active Substance: ALBUTEROL SULFATE
  8. PROLIA [Concomitant]
     Active Substance: DENOSUMAB
  9. Dulcolax [Concomitant]
  10. POTASSIUM CHLORIDE [Concomitant]
     Active Substance: POTASSIUM CHLORIDE
  11. METOLAZONE [Concomitant]
     Active Substance: METOLAZONE
  12. LEFLUNOMIDE [Concomitant]
     Active Substance: LEFLUNOMIDE
  13. CLEOCIN T [Concomitant]
     Active Substance: CLINDAMYCIN PHOSPHATE
  14. PANTOPRAZOLE SODIUM [Concomitant]
     Active Substance: PANTOPRAZOLE SODIUM
  15. MIRTAZAPINE [Concomitant]
     Active Substance: MIRTAZAPINE
  16. AMLODIPINE BESYLATE [Concomitant]
     Active Substance: AMLODIPINE BESYLATE
  17. AZELASTINE HYDROCHLORIDE [Concomitant]
     Active Substance: AZELASTINE HYDROCHLORIDE
  18. FLONASE ALLERGY RELIEF [Concomitant]
     Active Substance: FLUTICASONE PROPIONATE
  19. ATORVASTATIN CALCIUM [Concomitant]
     Active Substance: ATORVASTATIN CALCIUM
  20. CHOLECALCIFEROL [Concomitant]
     Active Substance: CHOLECALCIFEROL
  21. ALBUTEROL SULFATE [Concomitant]
     Active Substance: ALBUTEROL SULFATE
  22. MAGNESIUM [Concomitant]
     Active Substance: MAGNESIUM
  23. PROMETHAZINE HYDROCHLORIDE [Concomitant]
     Active Substance: PROMETHAZINE HYDROCHLORIDE
  24. OMEPRAZOLE [Concomitant]
     Active Substance: OMEPRAZOLE
  25. METOPROLOL SUCCINATE [Concomitant]
     Active Substance: METOPROLOL SUCCINATE
  26. POLYETHYLENE GLYCOL [Concomitant]
     Active Substance: POLYETHYLENE GLYCOL
  27. CLARITIN [Concomitant]
     Active Substance: LORATADINE
  28. VITAMINS [Concomitant]
     Active Substance: VITAMINS
  29. HYDROCORTISONE [Concomitant]
     Active Substance: HYDROCORTISONE
  30. OXYGEN [Concomitant]
     Active Substance: OXYGEN
  31. BUMETANIDE [Concomitant]
     Active Substance: BUMETANIDE
  32. PREDNISONE [Concomitant]
     Active Substance: PREDNISONE
  33. MUPIROCIN [Concomitant]
     Active Substance: MUPIROCIN
  34. PAIN RELIEF NOS [Concomitant]
     Active Substance: UNSPECIFIED INGREDIENT
  35. CETIRIZINE HCL [Concomitant]
     Active Substance: CETIRIZINE HYDROCHLORIDE
  36. AMBRISENTAN [Concomitant]
     Active Substance: AMBRISENTAN
  37. ASPIRIN [Concomitant]
     Active Substance: ASPIRIN
  38. MYLANTA MAXIMUM STRENGTH [Concomitant]
     Active Substance: ALUMINUM HYDROXIDE\DIMETHICONE\MAGNESIUM HYDROXIDE
  39. TRIAMCINOLONE ACETONIDE [Concomitant]
     Active Substance: TRIAMCINOLONE ACETONIDE

REACTIONS (1)
  - Death [Fatal]

NARRATIVE: CASE EVENT DATE: 20250415
